FAERS Safety Report 11615385 (Version 2)
Quarter: 2015Q4

REPORT INFORMATION
  Report Type: Spontaneous
  Country: BG (occurrence: BG)
  Receive Date: 20151009
  Receipt Date: 20151020
  Transmission Date: 20160304
  Serious: Yes (Other)
  Sender: FDA-Public Use
  Company Number: BG-ASTELLAS-2015US036673

PATIENT
  Age: 65 Year
  Sex: Male

DRUGS (4)
  1. CONCOR [Concomitant]
     Active Substance: BISOPROLOL FUMARATE
     Indication: ESSENTIAL HYPERTENSION
     Route: 048
  2. TARCEVA [Suspect]
     Active Substance: ERLOTINIB HYDROCHLORIDE
     Indication: NON-SMALL CELL LUNG CANCER
     Dosage: 150 MG, ONCE DAILY (DUE TO THE PARTICIPATION IN CT)
     Route: 048
     Dates: start: 2012, end: 20150907
  3. TARCEVA [Suspect]
     Active Substance: ERLOTINIB HYDROCHLORIDE
     Dosage: 150 MG, ONCE DAILY (RECEIVED FROM PHARMACY)
     Route: 048
     Dates: start: 20150908, end: 20150912
  4. TARCEVA [Suspect]
     Active Substance: ERLOTINIB HYDROCHLORIDE
     Dosage: 150 MG, ONCE DAILY (RECEIVED FROM PHARMACY)
     Route: 048
     Dates: start: 20150918, end: 20151001

REACTIONS (4)
  - Hypersensitivity [Recovered/Resolved]
  - Anxiety [Not Recovered/Not Resolved]
  - Insomnia [Unknown]
  - Rash pustular [Recovering/Resolving]

NARRATIVE: CASE EVENT DATE: 20150912
